FAERS Safety Report 12772893 (Version 1)
Quarter: 2016Q3

REPORT INFORMATION
  Report Type: Spontaneous
  Country: US (occurrence: US)
  Receive Date: 20160922
  Receipt Date: 20160922
  Transmission Date: 20161109
  Serious: No
  Sender: FDA-Public Use
  Company Number: US-ELI_LILLY_AND_COMPANY-US201609007347

PATIENT
  Age: 63 Year
  Sex: Female

DRUGS (3)
  1. HUMULIN R [Suspect]
     Active Substance: INSULIN HUMAN
     Indication: DIABETES MELLITUS
     Dosage: 45 U, BID
     Route: 065
     Dates: start: 2014
  2. METFORMIN [Concomitant]
     Active Substance: METFORMIN HYDROCHLORIDE
  3. PIOGLITAZONE. [Concomitant]
     Active Substance: PIOGLITAZONE

REACTIONS (3)
  - Ligament injury [Unknown]
  - Arthritis [Unknown]
  - Fall [Unknown]

NARRATIVE: CASE EVENT DATE: 201609
